FAERS Safety Report 4567655-2 (Version None)
Quarter: 2005Q1

REPORT INFORMATION
  Report Type: 
  Country: None (occurrence: None)
  Receive Date: 20050110
  Receipt Date: 20050110
  Transmission Date: 20050727
  Serious: Yes (Other)
  Sender: FDA-Public Use
  Company Number: None

PATIENT
  Age: 46 Year
  Sex: Female

DRUGS (2)
  1. TIAZAC [Suspect]
     Indication: HYPERTENSION
     Dosage: 240 MG PO ONE DAILY
     Route: 048
  2. DILTIAZEM HCL [Suspect]
     Dosage: 120 MG ONE PO @ HS
     Route: 048

REACTIONS (3)
  - BLOOD PRESSURE INCREASED [None]
  - DRUG EFFECT DECREASED [None]
  - PHARMACEUTICAL PRODUCT COMPLAINT [None]
